FAERS Safety Report 18736592 (Version 1)
Quarter: 2021Q1

REPORT INFORMATION
  Report Type: Spontaneous
  Country: US (occurrence: US)
  Receive Date: 20210113
  Receipt Date: 20210113
  Transmission Date: 20210419
  Serious: Yes (Other)
  Sender: FDA-Public Use
  Company Number: US-MYLANLABS-2021M1001725

PATIENT
  Age: 37 Year
  Sex: Male

DRUGS (1)
  1. IBUPROFEN. [Suspect]
     Active Substance: IBUPROFEN
     Indication: HEADACHE
     Dosage: UNK UNK, QD
     Route: 065

REACTIONS (5)
  - Oedema peripheral [Unknown]
  - Glomerulonephritis membranous [Recovering/Resolving]
  - Hypertension [Recovered/Resolved]
  - Focal segmental glomerulosclerosis [Recovering/Resolving]
  - Nephrotic syndrome [Recovering/Resolving]
